FAERS Safety Report 7293242-1 (Version None)
Quarter: 2011Q1

REPORT INFORMATION
  Report Type: 
  Country: None (occurrence: None)
  Receive Date: 20110204
  Receipt Date: 20110125
  Transmission Date: 20110831
  Serious: Yes (Other)
  Sender: FDA-Public Use
  Company Number: 2010SP063975

PATIENT
  Age: 56 Year
  Sex: Male

DRUGS (5)
  1. BENZDTROINE (BENZTROINE) [Concomitant]
  2. CELEXA [Concomitant]
  3. SAPHRIS [Suspect]
     Indication: SCHIZOPHRENIA
     Dosage: 10 MG;BID;PO
     Route: 048
     Dates: start: 20101104, end: 20101206
  4. KLONOPIN [Concomitant]
  5. EPITOL [Concomitant]

REACTIONS (6)
  - DIZZINESS [None]
  - SOMNOLENCE [None]
  - DRUG INEFFECTIVE [None]
  - CONDITION AGGRAVATED [None]
  - HALLUCINATION, AUDITORY [None]
  - ABNORMAL BEHAVIOUR [None]
